FAERS Safety Report 13759175 (Version 1)
Quarter: 2017Q3

REPORT INFORMATION
  Report Type: Spontaneous
  Country: US (occurrence: US)
  Receive Date: 20170717
  Receipt Date: 20170717
  Transmission Date: 20171127
  Serious: Yes (Other)
  Sender: FDA-Public Use
  Company Number: US-TARO PHARMACEUTICALS USA.,INC-2017SUN00247

PATIENT
  Age: 68 Year
  Sex: Male

DRUGS (3)
  1. WARFARIN [Suspect]
     Active Substance: WARFARIN
     Indication: PULMONARY EMBOLISM
     Dosage: UNK
     Route: 065
  2. ENOXAPARIN [Suspect]
     Active Substance: ENOXAPARIN
     Indication: PULMONARY EMBOLISM
     Dosage: UNK
     Route: 065
  3. ASPIRIN. [Suspect]
     Active Substance: ASPIRIN
     Indication: PRODUCT USED FOR UNKNOWN INDICATION
     Dosage: UNK
     Route: 065

REACTIONS (12)
  - Dizziness [Unknown]
  - Ataxia [Recovering/Resolving]
  - Balance disorder [Recovering/Resolving]
  - Headache [Unknown]
  - Hypoaesthesia [Unknown]
  - Facial paralysis [Recovering/Resolving]
  - Vertigo [Unknown]
  - Hydrocephalus [Unknown]
  - Vasogenic cerebral oedema [Unknown]
  - Deafness [Unknown]
  - Diplopia [Unknown]
  - Tumour haemorrhage [Unknown]
